FAERS Safety Report 14658577 (Version 12)
Quarter: 2022Q1

REPORT INFORMATION
  Report Type: Spontaneous
  Country: US (occurrence: US)
  Receive Date: 20180320
  Receipt Date: 20220325
  Transmission Date: 20220423
  Serious: No
  Sender: FDA-Public Use
  Company Number: US-PFIZER INC-2018114429

PATIENT
  Age: 60 Year
  Sex: Female

DRUGS (1)
  1. XELJANZ XR [Suspect]
     Active Substance: TOFACITINIB CITRATE
     Indication: Rheumatoid arthritis
     Dosage: 11 MG, DAILY
     Route: 048

REACTIONS (8)
  - Arthritis [Unknown]
  - Musculoskeletal disorder [Unknown]
  - Memory impairment [Unknown]
  - Mobility decreased [Unknown]
  - Periarthritis [Unknown]
  - Neuralgia [Unknown]
  - Walking aid user [Unknown]
  - Gait inability [Unknown]
